FAERS Safety Report 10145999 (Version 1)
Quarter: 2014Q2

REPORT INFORMATION
  Report Type: Spontaneous
  Country: US (occurrence: US)
  Receive Date: 20140501
  Receipt Date: 20140501
  Transmission Date: 20141212
  Serious: No
  Sender: FDA-Public Use
  Company Number: US-009507513-1404USA004402

PATIENT
  Sex: Female

DRUGS (3)
  1. PEGINTRON [Suspect]
     Indication: HEPATITIS C
     Dosage: 150 MICROGRAM ONCE WEEKLY,INJECTION
     Dates: start: 20140213
  2. LUNESTA [Suspect]
     Indication: INSOMNIA
     Dosage: UNK
  3. VITAMIN D (UNSPECIFIED) [Concomitant]

REACTIONS (6)
  - Fall [Not Recovered/Not Resolved]
  - Product quality issue [Unknown]
  - Adverse event [Not Recovered/Not Resolved]
  - Injection site reaction [Not Recovered/Not Resolved]
  - Memory impairment [Not Recovered/Not Resolved]
  - Insomnia [Not Recovered/Not Resolved]
